FAERS Safety Report 7700643-3 (Version None)
Quarter: 2011Q3

REPORT INFORMATION
  Report Type: 
  Country: None (occurrence: None)
  Receive Date: 20110822
  Receipt Date: 20110822
  Transmission Date: 20111222
  Serious: Yes (Hospitalization)
  Sender: FDA-Public Use
  Company Number: None

PATIENT
  Sex: Female
  Weight: 72.574 kg

DRUGS (1)
  1. ADIPEX [Suspect]
     Indication: WEIGHT CONTROL
     Dosage: 1 TABLET
     Route: 048
     Dates: start: 20110815, end: 20110819

REACTIONS (6)
  - RASH [None]
  - MENTAL DISORDER [None]
  - COORDINATION ABNORMAL [None]
  - MOOD ALTERED [None]
  - SWOLLEN TONGUE [None]
  - DISORIENTATION [None]
